FAERS Safety Report 10267551 (Version 2)
Quarter: 2014Q3

REPORT INFORMATION
  Report Type: Spontaneous
  Country: US (occurrence: US)
  Receive Date: 20140630
  Receipt Date: 20140804
  Transmission Date: 20150326
  Serious: No
  Sender: FDA-Public Use
  Company Number: US-PFIZER INC-2014176236

PATIENT
  Sex: Male

DRUGS (3)
  1. CHANTIX [Interacting]
     Active Substance: VARENICLINE TARTRATE
     Dosage: UNK
  2. CHANTIX [Suspect]
     Active Substance: VARENICLINE TARTRATE
     Indication: SMOKING CESSATION THERAPY
     Dosage: 0.5 MG, 1X/DAY
  3. CHANTIX [Interacting]
     Active Substance: VARENICLINE TARTRATE
     Dosage: 1 MG, 2X/DAY

REACTIONS (8)
  - Stress [Unknown]
  - Abnormal dreams [Recovered/Resolved]
  - Dyspnoea [Unknown]
  - Activities of daily living impaired [Unknown]
  - Fatigue [Unknown]
  - Sleep disorder [Unknown]
  - Drug interaction [Unknown]
  - Intentional product misuse [Unknown]
